FAERS Safety Report 14467233 (Version 1)
Quarter: 2018Q1

REPORT INFORMATION
  Report Type: Spontaneous
  Country: US (occurrence: US)
  Receive Date: 20180130
  Receipt Date: 20180130
  Transmission Date: 20180509
  Serious: Yes (Death)
  Sender: FDA-Public Use
  Company Number: None

PATIENT
  Age: 70 Year
  Sex: Female

DRUGS (10)
  1. ESCITALOPRAM [Concomitant]
     Active Substance: ESCITALOPRAM OXALATE
  2. TRAMADOL. [Concomitant]
     Active Substance: TRAMADOL
  3. NOVOLOG [Concomitant]
     Active Substance: INSULIN ASPART
  4. BUMETANIDE. [Concomitant]
     Active Substance: BUMETANIDE
  5. LISINOPRIL. [Concomitant]
     Active Substance: LISINOPRIL
  6. GABAPENTIN. [Concomitant]
     Active Substance: GABAPENTIN
  7. ATORVASTATIN [Concomitant]
     Active Substance: ATORVASTATIN
  8. TRESIB [Concomitant]
  9. SILDENAFIL 20MG TABS [Suspect]
     Active Substance: SILDENAFIL
     Indication: PULMONARY ARTERIAL HYPERTENSION
     Route: 048
     Dates: start: 20160131, end: 20180117
  10. CLOPIDOGREL [Concomitant]
     Active Substance: CLOPIDOGREL BISULFATE

REACTIONS (1)
  - Death [None]

NARRATIVE: CASE EVENT DATE: 20180117
